FAERS Safety Report 9772328 (Version 3)
Quarter: 2014Q1

REPORT INFORMATION
  Report Type: Spontaneous
  Country: JP (occurrence: JP)
  Receive Date: 20131219
  Receipt Date: 20140106
  Transmission Date: 20141002
  Serious: No
  Sender: FDA-Public Use
  Company Number: JP-NOVOPROD-394211

PATIENT
  Age: 89 Year
  Sex: Male
  Weight: 49 kg

DRUGS (3)
  1. LEVEMIR CHU FLEXPEN [Suspect]
     Indication: TYPE 2 DIABETES MELLITUS
     Dosage: 15 IU, QD
     Route: 058
  2. GLIBENCLAMIDE [Concomitant]
     Indication: TYPE 2 DIABETES MELLITUS
     Dosage: 0.75 MG
     Route: 048
  3. AMARYL [Concomitant]
     Indication: TYPE 2 DIABETES MELLITUS
     Dosage: 0.5 MG, QD

REACTIONS (2)
  - Blood glucose fluctuation [Recovered/Resolved]
  - Injection site induration [Recovered/Resolved]
